FAERS Safety Report 21054589 (Version 2)
Quarter: 2022Q3

REPORT INFORMATION
  Report Type: Spontaneous
  Country: US (occurrence: US)
  Receive Date: 20220707
  Receipt Date: 20220707
  Transmission Date: 20221027
  Serious: No
  Sender: FDA-Public Use
  Company Number: US-PFIZER INC-PV202200014799

PATIENT
  Age: 71 Year
  Sex: Male

DRUGS (2)
  1. EUCRISA [Suspect]
     Active Substance: CRISABOROLE
     Indication: Dermatitis
     Dosage: APPLY THIN LAYER BID TO TRUNK
  2. EUCRISA [Suspect]
     Active Substance: CRISABOROLE
     Indication: Eczema

REACTIONS (2)
  - Burning sensation [Unknown]
  - Pain [Unknown]
